FAERS Safety Report 11934295 (Version 1)
Quarter: 2016Q1

REPORT INFORMATION
  Report Type: Spontaneous
  Country: US (occurrence: None)
  Receive Date: 20160120
  Receipt Date: 20160120
  Transmission Date: 20160526
  Serious: Yes (Other)
  Sender: FDA-Public Use
  Company Number: None

PATIENT
  Age: 61 Year
  Sex: Male
  Weight: 56.25 kg

DRUGS (11)
  1. WHEY PROTEIN ENRICHED IN CYSTINE BOVINE. [Concomitant]
     Active Substance: WHEY PROTEIN ENRICHED IN CYSTINE BOVINE
  2. COD LIVER OIL [Concomitant]
     Active Substance: COD LIVER OIL
  3. VITAMIN C WITH BIOFLAVONOIDS [Concomitant]
  4. PROSTAGEUM [Concomitant]
  5. CURCUMIN [Concomitant]
     Active Substance: CURCUMIN
  6. DESSICATED LIVER [Concomitant]
  7. ALPHA LIPOIC ACID [Concomitant]
     Active Substance: .ALPHA.-LIPOIC ACID
  8. MAGNESIUM OIL AND EPSOM SALT BATH [Concomitant]
  9. INJECTAFER [Suspect]
     Active Substance: FERRIC CARBOXYMALTOSE
     Indication: ANAEMIA
     Dosage: INTO A VEIN
     Route: 042
     Dates: start: 20160115
  10. SAW PALMETTO [Concomitant]
     Active Substance: SAW PALMETTO
  11. VITAMIN B12 [Concomitant]
     Active Substance: CYANOCOBALAMIN

REACTIONS (1)
  - Rash pruritic [None]

NARRATIVE: CASE EVENT DATE: 20160116
